FAERS Safety Report 20616314 (Version 1)
Quarter: 2022Q1

REPORT INFORMATION
  Report Type: Spontaneous
  Country: US (occurrence: None)
  Receive Date: 20220320
  Receipt Date: 20220320
  Transmission Date: 20220423
  Serious: Yes (Death)
  Sender: FDA-Public Use
  Company Number: None

PATIENT
  Age: 66 Year
  Sex: Male

DRUGS (2)
  1. TACROLIMUS [Suspect]
     Active Substance: TACROLIMUS
     Indication: Transplant
     Dosage: OTHER QUANTITY : 1 CAPSULES;?FREQUENCY : TWICE A DAY;?
     Route: 048
     Dates: start: 20200929, end: 20220220
  2. MYCOPHENOLIC ACID [Suspect]
     Active Substance: MYCOPHENOLIC ACID
     Indication: Transplant
     Dosage: OTHER QUANTITY : 2 CAPSULES;?FREQUENCY : TWICE A DAY;?
     Route: 048
     Dates: start: 20200929, end: 20220220

REACTIONS (1)
  - COVID-19 pneumonia [None]

NARRATIVE: CASE EVENT DATE: 20220220
